FAERS Safety Report 8224133-7 (Version None)
Quarter: 2012Q1

REPORT INFORMATION
  Report Type: 
  Country: None (occurrence: None)
  Receive Date: 20120321
  Receipt Date: 20120316
  Transmission Date: 20120608
  Serious: No
  Sender: FDA-Public Use
  Company Number: US-PFIZER INC-2012051555

PATIENT
  Sex: Female
  Weight: 74.83 kg

DRUGS (2)
  1. LYRICA [Suspect]
     Indication: PAIN
     Dosage: 200 MG, UNK
     Route: 048
     Dates: start: 20081001, end: 20120203
  2. LYRICA [Suspect]
     Indication: RHEUMATOID ARTHRITIS

REACTIONS (1)
  - NASOPHARYNGITIS [None]
